FAERS Safety Report 18916881 (Version 5)
Quarter: 2024Q1

REPORT INFORMATION
  Report Type: Spontaneous
  Country: JP (occurrence: JP)
  Receive Date: 20210219
  Receipt Date: 20240101
  Transmission Date: 20240410
  Serious: Yes (Death, Life-Threatening)
  Sender: FDA-Public Use
  Company Number: JP-JNJFOC-20210227634

PATIENT
  Age: 64 Year
  Sex: Female
  Weight: 51.3 kg

DRUGS (34)
  1. UPTRAVI [Suspect]
     Active Substance: SELEXIPAG
     Indication: Pulmonary arterial hypertension
     Route: 048
     Dates: start: 20190714
  2. UPTRAVI [Suspect]
     Active Substance: SELEXIPAG
     Indication: Pulmonary hypertension
     Route: 048
     Dates: start: 20190716, end: 20191014
  3. UPTRAVI [Suspect]
     Active Substance: SELEXIPAG
     Route: 048
     Dates: start: 20191015, end: 20191111
  4. UPTRAVI [Suspect]
     Active Substance: SELEXIPAG
     Route: 048
     Dates: start: 20191112, end: 20200113
  5. UPTRAVI [Suspect]
     Active Substance: SELEXIPAG
     Route: 048
     Dates: start: 20200114, end: 20210103
  6. UPTRAVI [Suspect]
     Active Substance: SELEXIPAG
     Route: 048
     Dates: start: 20210116, end: 20210205
  7. UPTRAVI [Suspect]
     Active Substance: SELEXIPAG
     Route: 048
     Dates: start: 20210206, end: 20210712
  8. UPTRAVI [Suspect]
     Active Substance: SELEXIPAG
     Route: 048
     Dates: start: 20210713, end: 20211025
  9. UPTRAVI [Suspect]
     Active Substance: SELEXIPAG
     Route: 048
     Dates: start: 20211026, end: 20211222
  10. UPTRAVI [Suspect]
     Active Substance: SELEXIPAG
     Route: 048
     Dates: start: 20190820, end: 20190916
  11. UPTRAVI [Suspect]
     Active Substance: SELEXIPAG
     Route: 048
     Dates: start: 20190917, end: 20191014
  12. UPTRAVI [Suspect]
     Active Substance: SELEXIPAG
     Route: 048
     Dates: start: 20191015, end: 20191111
  13. UPTRAVI [Suspect]
     Active Substance: SELEXIPAG
     Route: 048
     Dates: start: 20210713, end: 20211025
  14. UPTRAVI [Suspect]
     Active Substance: SELEXIPAG
     Route: 048
     Dates: start: 20211026, end: 20211222
  15. ELIQUIS [Concomitant]
     Active Substance: APIXABAN
     Dates: end: 20211222
  16. SPIRONOLACTONE [Concomitant]
     Active Substance: SPIRONOLACTONE
     Dates: end: 20211222
  17. FUROSEMIDE [Concomitant]
     Active Substance: FUROSEMIDE
  18. LANSOPRAZOLE [Concomitant]
     Active Substance: LANSOPRAZOLE
     Dates: end: 20211222
  19. AMBROXOL HYDROCHLORIDE [Concomitant]
     Active Substance: AMBROXOL HYDROCHLORIDE
     Dates: end: 20211222
  20. ADCIRCA [Concomitant]
     Active Substance: TADALAFIL
     Indication: Pulmonary arterial hypertension
     Dates: start: 20190618, end: 20211222
  21. OPSUMIT [Concomitant]
     Active Substance: MACITENTAN
     Indication: Pulmonary arterial hypertension
     Dates: start: 20190521, end: 20211222
  22. TORSEMIDE [Concomitant]
     Active Substance: TORSEMIDE
     Indication: Cardiac failure
     Dates: start: 20190521, end: 20211222
  23. BENZBROMARONE [Concomitant]
     Active Substance: BENZBROMARONE
     Indication: Hyperuricaemia
     Dates: end: 20211222
  24. LIVALO [Concomitant]
     Active Substance: PITAVASTATIN CALCIUM
     Indication: Dyslipidaemia
     Dates: end: 20211222
  25. LASIX [Concomitant]
     Active Substance: FUROSEMIDE
     Dates: start: 20200114, end: 20211222
  26. LASIX [Concomitant]
     Active Substance: FUROSEMIDE
     Dates: start: 20200114, end: 20211222
  27. LASIX [Concomitant]
     Active Substance: FUROSEMIDE
     Dates: start: 20200114, end: 20211222
  28. TOLVAPTAN [Concomitant]
     Active Substance: TOLVAPTAN
     Dates: start: 20210608, end: 20211222
  29. TOLVAPTAN [Concomitant]
     Active Substance: TOLVAPTAN
     Dates: start: 20200114, end: 20211222
  30. TOLVAPTAN [Concomitant]
     Active Substance: TOLVAPTAN
     Dates: start: 20210608, end: 20211222
  31. TOLVAPTAN [Concomitant]
     Active Substance: TOLVAPTAN
     Dates: start: 20210608, end: 20211222
  32. BISOPROLOL [Concomitant]
     Active Substance: BISOPROLOL\BISOPROLOL FUMARATE
     Dates: start: 20210610, end: 20211222
  33. TRICHLORMETHIAZIDE [Concomitant]
     Active Substance: TRICHLORMETHIAZIDE
     Dates: start: 20210629, end: 20211222
  34. DAPAGLIFLOZIN [Concomitant]
     Active Substance: DAPAGLIFLOZIN
     Dates: start: 20211026, end: 20211222

REACTIONS (5)
  - Pulmonary arterial hypertension [Fatal]
  - Hypotension [Fatal]
  - Hot flush [Recovering/Resolving]
  - Insomnia [Not Recovered/Not Resolved]
  - Pain [Recovering/Resolving]
